FAERS Safety Report 7633316 (Version 4)
Quarter: 2015Q4

REPORT INFORMATION
  Report Type: Spontaneous
  Country: US (occurrence: US)
  Receive Date: 20101019
  Receipt Date: 20151217
  Transmission Date: 20160305
  Serious: Yes (Hospitalization)
  Sender: FDA-Public Use
  Company Number: US-BAYER-201037026NA

PATIENT
  Age: 43 Year
  Sex: Female
  Weight: 68.03 kg

DRUGS (3)
  1. BEXTRA [Concomitant]
     Active Substance: VALDECOXIB
     Dosage: UNK UNK, PRN
     Dates: start: 20030819
  2. YASMIN [Suspect]
     Active Substance: DROSPIRENONE\ETHINYL ESTRADIOL
     Indication: MENSTRUAL CYCLE MANAGEMENT
     Dosage: UNK
     Route: 048
     Dates: start: 200309
  3. LORTAB [Concomitant]
     Active Substance: ACETAMINOPHEN\HYDROCODONE BITARTRATE
     Dosage: UNK
     Dates: start: 20030801

REACTIONS (3)
  - Emotional distress [None]
  - Cerebrovascular accident [None]
  - Pain [None]

NARRATIVE: CASE EVENT DATE: 20030923
